FAERS Safety Report 5165441-6 (Version None)
Quarter: 2006Q4

REPORT INFORMATION
  Report Type: 
  Country: None (occurrence: None)
  Receive Date: 20061120
  Receipt Date: 20061108
  Transmission Date: 20070319
  Serious: Yes (Hospitalization)
  Sender: FDA-Public Use
  Company Number: WSDF_00586

PATIENT
  Sex: Female

DRUGS (1)
  1. WINRHO SDF [Suspect]
     Dates: start: 20061101, end: 20061101

REACTIONS (9)
  - ALANINE AMINOTRANSFERASE INCREASED [None]
  - ASPARTATE AMINOTRANSFERASE INCREASED [None]
  - BACK PAIN [None]
  - BLOOD LACTATE DEHYDROGENASE INCREASED [None]
  - CHILLS [None]
  - COOMBS TEST POSITIVE [None]
  - HAEMOLYSIS [None]
  - JAUNDICE [None]
  - TRANSFUSION REACTION [None]
